FAERS Safety Report 7831384-X (Version None)
Quarter: 2011Q4

REPORT INFORMATION
  Report Type: 
  Country: None (occurrence: None)
  Receive Date: 20111021
  Receipt Date: 20111007
  Transmission Date: 20120403
  Serious: Yes (Death, Life-Threatening, Hospitalization)
  Sender: FDA-Public Use
  Company Number: DE-CELGENEUS-062-21880-11092969

PATIENT
  Age: 59 Year
  Sex: Male
  Weight: 71 kg

DRUGS (7)
  1. DEXAMETHASONE [Suspect]
     Indication: MULTIPLE MYELOMA
     Dosage: 40 MILLIGRAM
     Route: 065
     Dates: start: 20110701, end: 20110722
  2. REVLIMID [Suspect]
     Dosage: 25 MILLIGRAM
     Route: 048
     Dates: start: 20110729, end: 20110811
  3. DEXAMETHASONE [Suspect]
     Route: 065
     Dates: start: 20110923
  4. AVELOX [Concomitant]
     Indication: PNEUMONITIS
     Dosage: 400 MILLIGRAM
     Route: 048
     Dates: start: 20110812, end: 20110826
  5. DEXAMETHASONE [Suspect]
     Dosage: 40 MILLIGRAM
     Route: 065
     Dates: start: 20110729, end: 20110805
  6. AVELOX [Concomitant]
     Dosage: 400 MILLIGRAM
     Route: 048
     Dates: start: 20110909
  7. REVLIMID [Suspect]
     Indication: MULTIPLE MYELOMA
     Dosage: 25 MILLIGRAM
     Route: 048
     Dates: start: 20110701, end: 20110721

REACTIONS (4)
  - ACUTE MYOCARDIAL INFARCTION [None]
  - PNEUMONIA [None]
  - PLASMACYTOMA [None]
  - CEREBRAL HAEMORRHAGE [None]
